FAERS Safety Report 9772244 (Version 4)
Quarter: 2014Q1

REPORT INFORMATION
  Report Type: Spontaneous
  Country: JP (occurrence: JP)
  Receive Date: 20131219
  Receipt Date: 20140226
  Transmission Date: 20141002
  Serious: Yes (Hospitalization)
  Sender: FDA-Public Use
  Company Number: JP-NAPPMUNDI-GBR-2013-0016598

PATIENT
  Age: 58 Year
  Sex: Female

DRUGS (11)
  1. OXYCODONE HCL PR TABLET [Suspect]
     Indication: CANCER PAIN
     Dosage: 5 MG, TID
     Route: 048
     Dates: start: 20131015
  2. OXYCODONE HCL PR TABLET [Suspect]
     Dosage: 5 MG, BID
     Route: 048
     Dates: start: 20131012, end: 20131014
  3. NEXAVAR [Suspect]
     Indication: RENAL CANCER
     Dosage: 400 MG, DAILY
     Route: 048
     Dates: start: 20131025, end: 20131119
  4. NEXAVAR [Suspect]
     Dosage: 800 MG, DAILY
     Route: 048
     Dates: start: 20131010, end: 20131024
  5. OXYCODONE HCL IR CAPSULE 5 MG [Concomitant]
     Indication: CANCER PAIN
     Dosage: 5 MG, PRN
     Route: 048
     Dates: start: 20131009
  6. LOXONIN [Concomitant]
     Indication: CANCER PAIN
     Dosage: 180 MG, DAILY
     Route: 048
     Dates: start: 20131009
  7. CONIEL [Concomitant]
     Indication: HYPERTENSION
     Dosage: 8 MG, DAILY
     Route: 048
     Dates: start: 20131108, end: 20131115
  8. CONIEL [Concomitant]
     Dosage: 4 MG, DAILY
     Route: 048
     Dates: start: 20131101, end: 20131107
  9. REBAMIPIDE [Concomitant]
     Dosage: 100 MG, TID
  10. CYSTEINE/GLYCINE/AMMONIUM GLYCYRRHIZINATE [Concomitant]
     Dosage: 80 ML, DAILY
     Dates: start: 20131203, end: 20131213
  11. LANSOPRAZOLE [Concomitant]
     Dosage: 15 MG, DAILY
     Dates: start: 20131122

REACTIONS (3)
  - Hypertension [Unknown]
  - Hepatic function abnormal [Recovering/Resolving]
  - Rash [Unknown]
